FAERS Safety Report 9890766 (Version 1)
Quarter: 2014Q1

REPORT INFORMATION
  Report Type: Spontaneous
  Country: US (occurrence: None)
  Receive Date: 20140207
  Receipt Date: 20140207
  Transmission Date: 20141002
  Serious: Yes (Disabling)
  Sender: FDA-Public Use
  Company Number: 2014P1000806

PATIENT
  Age: 65 Year
  Sex: Male

DRUGS (1)
  1. LITHIUM [Suspect]
     Indication: BIPOLAR DISORDER

REACTIONS (16)
  - Ataxia [None]
  - Asthenia [None]
  - Dizziness [None]
  - Vomiting [None]
  - Weight decreased [None]
  - Aphasia [None]
  - Gait disturbance [None]
  - Gait disturbance [None]
  - Walking aid user [None]
  - Multiple system atrophy [None]
  - Hyperreflexia [None]
  - Masked facies [None]
  - Cogwheel rigidity [None]
  - Intention tremor [None]
  - Memory impairment [None]
  - Toxicity to various agents [None]
